FAERS Safety Report 20765130 (Version 1)
Quarter: 2022Q2

REPORT INFORMATION
  Report Type: Spontaneous
  Country: US (occurrence: US)
  Receive Date: 20220428
  Receipt Date: 20220428
  Transmission Date: 20220721
  Serious: No
  Sender: FDA-Public Use
  Company Number: US-SA-SAC20220420001633

PATIENT
  Age: 66 Year
  Sex: Female

DRUGS (20)
  1. LUMIZYME [Suspect]
     Active Substance: ALGLUCOSIDASE ALFA
     Indication: Glycogen storage disease type II
     Dosage: 2150 MG, QOW
     Route: 041
     Dates: start: 20201118
  2. ZOFRAN [Concomitant]
     Active Substance: ONDANSETRON HYDROCHLORIDE
  3. DIPHENHYDRAMINE [Concomitant]
     Active Substance: DIPHENHYDRAMINE
  4. ASPIRIN MAX [Concomitant]
  5. CODEINE [Concomitant]
     Active Substance: CODEINE
  6. ACETAMINOPHEN [Concomitant]
     Active Substance: ACETAMINOPHEN
  7. IODINE [Concomitant]
     Active Substance: IODINE
  8. PHENETICILLIN [Concomitant]
     Active Substance: PHENETICILLIN
  9. LORATADINE [Concomitant]
     Active Substance: LORATADINE
  10. HEPARIN [Concomitant]
     Active Substance: HEPARIN SODIUM
  11. LIDOCAINE [Concomitant]
     Active Substance: LIDOCAINE
  12. LORATADINE [Concomitant]
     Active Substance: LORATADINE
  13. STERILE WATER [Concomitant]
     Active Substance: WATER
  14. EPINEPHRINE [Concomitant]
     Active Substance: EPINEPHRINE
  15. METOPROLOL SUCCINATE [Concomitant]
     Active Substance: METOPROLOL SUCCINATE
  16. IBUPROFEN [Concomitant]
     Active Substance: IBUPROFEN
  17. CITALOPRAM [Concomitant]
     Active Substance: CITALOPRAM HYDROBROMIDE
  18. LORAZEPAM [Concomitant]
     Active Substance: LORAZEPAM
  19. BUPROPION [Concomitant]
     Active Substance: BUPROPION
  20. ALBUTEROL SULFATE [Concomitant]
     Active Substance: ALBUTEROL SULFATE

REACTIONS (5)
  - Fall [Unknown]
  - Contusion [Unknown]
  - Erythema [Unknown]
  - Swelling [Unknown]
  - Feeling hot [Unknown]

NARRATIVE: CASE EVENT DATE: 20220101
